FAERS Safety Report 9258428 (Version 3)
Quarter: 2020Q3

REPORT INFORMATION
  Report Type: Spontaneous
  Country: IT (occurrence: IT)
  Receive Date: 20130426
  Receipt Date: 20200812
  Transmission Date: 20201103
  Serious: Yes (Hospitalization, Other)
  Sender: FDA-Public Use
  Company Number: PHHY2013IT039491

PATIENT
  Age: 34 Year
  Sex: Female

DRUGS (4)
  1. KETOROLAC [Suspect]
     Active Substance: KETOROLAC TROMETHAMINE
     Indication: HEADACHE
     Dosage: UNK
     Route: 065
  2. CABERGOLINE. [Suspect]
     Active Substance: CABERGOLINE
     Indication: LACTATION INHIBITION THERAPY
     Dosage: 1 MG
     Route: 048
  3. BUDESONIDE. [Concomitant]
     Active Substance: BUDESONIDE
     Indication: ASTHMA
     Dosage: 1600 UG/DAY
     Route: 065
  4. FORMOTEROL [Concomitant]
     Active Substance: FORMOTEROL
     Indication: ASTHMA
     Dosage: UNK
     Route: 065

REACTIONS (13)
  - Kounis syndrome [Unknown]
  - Chest pain [Unknown]
  - Heart rate increased [Recovered/Resolved]
  - Ventricular fibrillation [Unknown]
  - Blood pressure systolic decreased [Recovered/Resolved]
  - Cardiac arrest [Unknown]
  - Pulmonary oedema [Unknown]
  - Ventricular hypokinesia [Not Recovered/Not Resolved]
  - Arteriospasm coronary [Recovered/Resolved]
  - Ejection fraction decreased [Not Recovered/Not Resolved]
  - Myocardial necrosis [Unknown]
  - Rales [Unknown]
  - Anaphylactic shock [Unknown]
